FAERS Safety Report 4411214-9 (Version None)
Quarter: 2004Q2

REPORT INFORMATION
  Report Type: 
  Country: None (occurrence: None)
  Receive Date: 20040630
  Receipt Date: 20040517
  Transmission Date: 20050107
  Serious: No
  Sender: FDA-Public Use
  Company Number: 04P-163-0231030-00

PATIENT
  Age: 59 Year
  Sex: Female
  Weight: 85.2762 kg

DRUGS (6)
  1. HUMIRA [Suspect]
     Indication: RHEUMATOID ARTHRITIS
     Dosage: 40 MG, 1 IN 2 WK, SUBCUTANEOUS
     Route: 058
     Dates: start: 20040511
  2. METHOTREXATE [Concomitant]
  3. ROFECOXIB [Concomitant]
  4. LEVOTHYROXINE SODIUM [Concomitant]
  5. RANITIDINE HYDROCHLORIDE [Concomitant]
  6. ROTREL [Concomitant]

REACTIONS (4)
  - ARTHRALGIA [None]
  - BACK PAIN [None]
  - PAIN [None]
  - PAIN IN EXTREMITY [None]
